FAERS Safety Report 22613876 (Version 1)
Quarter: 2023Q2

REPORT INFORMATION
  Report Type: Other
  Country: GB (occurrence: GB)
  Receive Date: 20230619
  Receipt Date: 20230619
  Transmission Date: 20230721
  Serious: Yes (Death, Hospitalization, Other)
  Sender: FDA-Public Use
  Company Number: None

PATIENT
  Sex: Female

DRUGS (7)
  1. SERTRALINE HYDROCHLORIDE [Suspect]
     Active Substance: SERTRALINE HYDROCHLORIDE
     Indication: Affective disorder
     Dosage: 1 DOSAGE FORM, QD
     Route: 065
  2. METFORMIN [Concomitant]
     Active Substance: METFORMIN HYDROCHLORIDE
     Indication: Product used for unknown indication
     Dosage: 1 DOSAGE FORM, QD (ONE TO BE TAKEN EACH DAY WITH BREAKFAST AND THEN INCREASE DOSE AS DIRECTED)
     Route: 065
     Dates: start: 20220928
  3. METFORMIN [Concomitant]
     Active Substance: METFORMIN HYDROCHLORIDE
     Dosage: 1 DOSAGE FORM, QD (ONE TO BE TAKEN EACH DAY WITH BREAKFAST AND THEN INCREASE DOSE AS DIRECTED)
     Route: 065
     Dates: start: 20221031
  4. METFORMIN [Concomitant]
     Active Substance: METFORMIN HYDROCHLORIDE
     Dosage: 500 MILLIGRAM, BID (PRIOR TO ADMISSION)
     Route: 065
  5. HYDROCORTISONE\MICONAZOLE NITRATE [Concomitant]
     Active Substance: HYDROCORTISONE\MICONAZOLE NITRATE
     Indication: Product used for unknown indication
     Dosage: UNK, APPLY THINLY TWICE A DAY AS DIRECTED 30 GRAM
     Route: 065
     Dates: start: 20221213
  6. HYDROCORTISONE\MICONAZOLE NITRATE [Concomitant]
     Active Substance: HYDROCORTISONE\MICONAZOLE NITRATE
     Dosage: UNK, APPLY THINLY TWICE A DAY AS DIRECTED 30 GRAM
     Route: 065
     Dates: start: 20221116
  7. HYDROCORTISONE\MICONAZOLE NITRATE [Concomitant]
     Active Substance: HYDROCORTISONE\MICONAZOLE NITRATE
     Dosage: UNK, APPLY THINLY TWICE A DAY AS DIRECTED 30 GRAM
     Route: 065
     Dates: start: 20221025

REACTIONS (1)
  - Gastrointestinal haemorrhage [Fatal]
